FAERS Safety Report 6808492-5 (Version None)
Quarter: 2010Q2

REPORT INFORMATION
  Report Type: 
  Country: None (occurrence: None)
  Receive Date: 20100629
  Receipt Date: 20090605
  Transmission Date: 20101027
  Serious: No
  Sender: FDA-Public Use
  Company Number: US-PFIZER INC-2009225128

PATIENT
  Sex: Male
  Weight: 76.2 kg

DRUGS (13)
  1. VIAGRA [Suspect]
     Indication: ERECTILE DYSFUNCTION
     Dosage: FREQUENCY: PRN,
     Route: 048
  2. METFORMIN [Concomitant]
     Dosage: UNK
  3. PRINZIDE [Concomitant]
     Dosage: 12.5 MG, 2X/DAY
  4. SIMVASTATIN [Concomitant]
     Dosage: 20 MG, 1X/DAY
  5. AVODART [Concomitant]
     Dosage: 0.5 MG, 1X/DAY
  6. SITAGLIPTIN [Concomitant]
     Dosage: 100 MG, 1X/DAY
  7. DETROL LA [Concomitant]
     Dosage: UNK
  8. TOPROL-XL [Concomitant]
     Dosage: UNK
  9. OMEGA-3 MARINE TRIGLYCERIDES [Concomitant]
     Dosage: UNK
  10. LYSINE [Concomitant]
     Dosage: UNK
  11. VITAMIN E [Concomitant]
     Dosage: UNK
  12. FISH OIL [Concomitant]
     Dosage: UNK
  13. LINSEED OIL [Concomitant]
     Dosage: UNK

REACTIONS (1)
  - DRUG INEFFECTIVE [None]
